FAERS Safety Report 5117138-6 (Version None)
Quarter: 2006Q3

REPORT INFORMATION
  Report Type: 
  Country: None (occurrence: None)
  Receive Date: 20060929
  Receipt Date: 20060802
  Transmission Date: 20061208
  Serious: Yes (Death, Other)
  Sender: FDA-Public Use
  Company Number: US-ABBOTT-06P-163-0339410-00

PATIENT
  Sex: Male
  Weight: 95 kg

DRUGS (16)
  1. TRICOR [Suspect]
     Indication: DYSLIPIDAEMIA
     Route: 048
     Dates: end: 20060611
  2. POGLITAZONE HYDROCHLORIDE [Interacting]
     Indication: DIABETES MELLITUS
     Route: 048
     Dates: end: 20060611
  3. NICOTINIC ACID [Interacting]
     Indication: HIGH DENSITY LIPOPROTEIN DECREASED
     Route: 048
     Dates: start: 20060611, end: 20060611
  4. NICOTINIC ACID [Interacting]
     Indication: BLOOD CHOLESTEROL INCREASED
  5. BUPROPION HYDROCHLORIDE [Interacting]
     Indication: DEPRESSION
     Route: 048
     Dates: end: 20060611
  6. VENLAFAXINE HYDROCHLORIDE [Interacting]
     Indication: DEPRESSION
     Route: 048
     Dates: end: 20060611
  7. LORAZEPAM [Interacting]
     Indication: DEPRESSION
     Route: 048
     Dates: end: 20060611
  8. TRAZODONE HCL [Interacting]
     Indication: DEPRESSION
     Route: 048
     Dates: end: 20060611
  9. ATENOLOL [Interacting]
     Indication: TACHYARRHYTHMIA
     Route: 048
     Dates: end: 20060611
  10. DIGOXIN [Interacting]
     Indication: TACHYARRHYTHMIA
     Route: 048
     Dates: end: 20060611
  11. GLUCOPHAGE(GLUCOPHAGE) [Interacting]
     Indication: DIABETES MELLITUS
     Route: 048
     Dates: end: 20060611
  12. GLIPIZIDE [Interacting]
     Indication: DIABETES MELLITUS
     Route: 048
     Dates: end: 20060611
  13. INSULIN GLARGINE [Interacting]
     Indication: DIABETES MELLITUS
     Route: 048
     Dates: end: 20060611
  14. ATORVASTATIN [Interacting]
     Indication: DRUG USE FOR UNKNOWN INDICATION
  15. MULTIVITAMIN [Suspect]
     Indication: DRUG USE FOR UNKNOWN INDICATION
     Dates: end: 20060611
  16. RISPERIDONE [Suspect]
     Indication: DRUG USE FOR UNKNOWN INDICATION
     Route: 048

REACTIONS (7)
  - BLOOD GLUCOSE INCREASED [None]
  - CARDIO-RESPIRATORY ARREST [None]
  - DRUG INTERACTION [None]
  - FLUSHING [None]
  - HEPATIC STEATOSIS [None]
  - MEDICATION ERROR [None]
  - MYOCARDIAL INFARCTION [None]
